FAERS Safety Report 15814149 (Version 1)
Quarter: 2019Q1

REPORT INFORMATION
  Report Type: Spontaneous
  Country: US (occurrence: US)
  Receive Date: 20190111
  Receipt Date: 20190111
  Transmission Date: 20190417
  Serious: No
  Sender: FDA-Public Use
  Company Number: US-JAZZ-2018-US-008931

PATIENT
  Sex: Male
  Weight: 89.8 kg

DRUGS (1)
  1. PRIALT [Suspect]
     Active Substance: ZICONOTIDE ACETATE
     Indication: PAIN
     Dosage: 0.083 ?G, QH
     Route: 037
     Dates: start: 20080821

REACTIONS (1)
  - Drug intolerance [Unknown]
